FAERS Safety Report 17467944 (Version 2)
Quarter: 2020Q1

REPORT INFORMATION
  Report Type: Spontaneous
  Country: US (occurrence: US)
  Receive Date: 20200227
  Receipt Date: 20200303
  Transmission Date: 20200409
  Serious: Yes (Death)
  Sender: FDA-Public Use
  Company Number: US-PFIZER INC-2020082547

PATIENT

DRUGS (1)
  1. NIPENT [Suspect]
     Active Substance: PENTOSTATIN
     Indication: WALDENSTROM^S MACROGLOBULINAEMIA
     Dosage: UNK, CYCLIC

REACTIONS (1)
  - Drug ineffective [Fatal]
